FAERS Safety Report 16945480 (Version 3)
Quarter: 2019Q4

REPORT INFORMATION
  Report Type: Report from Study
  Country: AR (occurrence: AR)
  Receive Date: 20191022
  Receipt Date: 20191108
  Transmission Date: 20200122
  Serious: Yes (Death, Other)
  Sender: FDA-Public Use
  Company Number: AR-ACTELION-A-CH2019-193698

PATIENT
  Age: 40 Year
  Sex: Female
  Weight: 83 kg

DRUGS (2)
  1. SINALGICO KETOROLAC [Suspect]
     Active Substance: KETOROLAC TROMETHAMINE
     Indication: TOOTHACHE
     Route: 065
  2. OPSUMIT [Suspect]
     Active Substance: MACITENTAN
     Indication: PULMONARY ARTERIAL HYPERTENSION
     Dosage: 10 MG, QD
     Route: 048
     Dates: start: 20190711

REACTIONS (9)
  - Patent ductus arteriosus repair [Unknown]
  - Toothache [Unknown]
  - Neck pain [Recovering/Resolving]
  - Depression [Recovering/Resolving]
  - Depressed mood [Recovering/Resolving]
  - Myocardial infarction [Fatal]
  - Dizziness [Recovering/Resolving]
  - Headache [Recovering/Resolving]
  - Hypotension [Unknown]

NARRATIVE: CASE EVENT DATE: 20191105
